FAERS Safety Report 9159335 (Version 1)
Quarter: 2013Q1

REPORT INFORMATION
  Report Type: Spontaneous
  Country: US (occurrence: US)
  Receive Date: 20130313
  Receipt Date: 20130313
  Transmission Date: 20140127
  Serious: Yes (Other)
  Sender: FDA-Public Use
  Company Number: US-BANPHARM-20130914

PATIENT
  Age: 79 Year
  Sex: Male
  Weight: 97.52 kg

DRUGS (8)
  1. ALEVE LIQUID GELS 220MG [Suspect]
     Indication: MUSCULOSKELETAL STIFFNESS
     Dosage: 1 CAPSULE,
     Route: 048
     Dates: start: 20130225
  2. SIMVASTATIN [Concomitant]
  3. HCTZ [Concomitant]
  4. CALCIUM 600 MG PLUS VITAMIN D [Concomitant]
  5. 81 MG BAYER ASPIRIN [Concomitant]
  6. VALSARTAN HCT [Concomitant]
  7. PANTOPRAZOLE [Concomitant]
  8. HYDROCHLOROTHIAZIDE [Concomitant]

REACTIONS (6)
  - Throat tightness [Recovered/Resolved]
  - Flushing [Recovering/Resolving]
  - Dysphagia [Recovering/Resolving]
  - Oral discomfort [Recovering/Resolving]
  - Feeling hot [Recovering/Resolving]
  - Headache [Recovering/Resolving]
